FAERS Safety Report 24275154 (Version 2)
Quarter: 2024Q3

REPORT INFORMATION
  Report Type: Report from Study
  Country: CR (occurrence: CR)
  Receive Date: 20240902
  Receipt Date: 20240906
  Transmission Date: 20241017
  Serious: Yes (Other)
  Sender: BIOGEN
  Company Number: CR-BIOGEN-2024BI01259957

PATIENT
  Age: 47 Year
  Sex: Female
  Weight: 110 kg

DRUGS (9)
  1. AVONEX [Suspect]
     Active Substance: INTERFERON BETA-1A
     Indication: Relapsing multiple sclerosis
     Route: 050
     Dates: start: 20240301
  2. AVONEX [Suspect]
     Active Substance: INTERFERON BETA-1A
     Route: 050
     Dates: start: 20240301
  3. AVONEX [Suspect]
     Active Substance: INTERFERON BETA-1A
  4. AVONEX [Suspect]
     Active Substance: INTERFERON BETA-1A
  5. INFLUENZA VIRUS VACCINE [Suspect]
     Active Substance: INFLUENZA VIRUS VACCINE
     Indication: Product used for unknown indication
     Route: 050
     Dates: start: 20240711
  6. EPIVAL [Concomitant]
     Active Substance: DIVALPROEX SODIUM
     Indication: Epilepsy
     Dosage: 2 PILLS IN THE MORNING, 2 PILLS AT 2:00 P.M. AND ONE AT NIGHT
     Route: 050
  7. ENALAPRIL [Concomitant]
     Active Substance: ENALAPRIL
     Indication: Hypertension
     Route: 050
  8. DEXTROMETHORPHAN [Concomitant]
     Active Substance: DEXTROMETHORPHAN
     Indication: Respiratory tract congestion
     Route: 050
  9. OMEPRAZOLE [Concomitant]
     Active Substance: OMEPRAZOLE
     Indication: Gastrointestinal disorder prophylaxis
     Route: 050
     Dates: start: 20240301

REACTIONS (50)
  - Noninfectious myelitis [Not Recovered/Not Resolved]
  - Tremor [Not Recovered/Not Resolved]
  - Back pain [Not Recovered/Not Resolved]
  - Skin burning sensation [Not Recovered/Not Resolved]
  - Productive cough [Recovered/Resolved]
  - Cough [Recovered/Resolved]
  - Blood pressure increased [Unknown]
  - Hypoaesthesia [Recovered/Resolved]
  - Respiratory rate increased [Recovered/Resolved]
  - Stress [Not Recovered/Not Resolved]
  - Fall [Recovered/Resolved]
  - Head injury [Unknown]
  - Bruxism [Not Recovered/Not Resolved]
  - Feeling hot [Unknown]
  - Feeling cold [Not Recovered/Not Resolved]
  - Blood pressure decreased [Unknown]
  - Suffocation feeling [Recovered/Resolved]
  - Oropharyngeal pain [Recovered/Resolved]
  - Choking sensation [Unknown]
  - Cold sweat [Recovered/Resolved]
  - Tinnitus [Recovered/Resolved]
  - Hypersomnia [Recovered/Resolved]
  - Peripheral swelling [Not Recovered/Not Resolved]
  - Gait inability [Not Recovered/Not Resolved]
  - Haematoma [Not Recovered/Not Resolved]
  - Fear [Not Recovered/Not Resolved]
  - Weight decreased [Not Recovered/Not Resolved]
  - Abdominal pain upper [Recovered/Resolved]
  - Dysstasia [Not Recovered/Not Resolved]
  - Gait disturbance [Not Recovered/Not Resolved]
  - Thermal burn [Not Recovered/Not Resolved]
  - Dry mouth [Not Recovered/Not Resolved]
  - Chest discomfort [Not Recovered/Not Resolved]
  - Migraine [Not Recovered/Not Resolved]
  - Immunisation reaction [Not Recovered/Not Resolved]
  - Pain [Not Recovered/Not Resolved]
  - Dizziness [Not Recovered/Not Resolved]
  - Pain in extremity [Not Recovered/Not Resolved]
  - Paraesthesia [Unknown]
  - Arthralgia [Recovered/Resolved]
  - Hyperhidrosis [Not Recovered/Not Resolved]
  - Influenza like illness [Recovered/Resolved]
  - Fatigue [Not Recovered/Not Resolved]
  - Insomnia [Not Recovered/Not Resolved]
  - Decreased appetite [Not Recovered/Not Resolved]
  - Nausea [Recovered/Resolved]
  - Depressed mood [Not Recovered/Not Resolved]
  - Asthenia [Not Recovered/Not Resolved]
  - Pyrexia [Not Recovered/Not Resolved]
  - Headache [Not Recovered/Not Resolved]

NARRATIVE: CASE EVENT DATE: 20240301
